FAERS Safety Report 14728469 (Version 1)
Quarter: 2018Q2

REPORT INFORMATION
  Report Type: Report from Study
  Country: BR (occurrence: BR)
  Receive Date: 20180406
  Receipt Date: 20180406
  Transmission Date: 20180711
  Serious: Yes (Other)
  Sender: FDA-Public Use
  Company Number: BR-JNJFOC-20180403906

PATIENT
  Age: 35 Year
  Sex: Female

DRUGS (3)
  1. RIVOTRIL [Concomitant]
     Active Substance: CLONAZEPAM
     Route: 065
  2. STELARA [Suspect]
     Active Substance: USTEKINUMAB
     Indication: PSORIASIS
     Route: 058
     Dates: start: 20160226
  3. IMOVANE [Concomitant]
     Active Substance: ZOPICLONE
     Route: 065

REACTIONS (3)
  - Liver disorder [Not Recovered/Not Resolved]
  - Dengue fever [Not Recovered/Not Resolved]
  - Skin exfoliation [Not Recovered/Not Resolved]

NARRATIVE: CASE EVENT DATE: 201803
